FAERS Safety Report 5398802-0 (Version None)
Quarter: 2007Q3

REPORT INFORMATION
  Report Type: 
  Country: None (occurrence: None)
  Receive Date: 20070725
  Receipt Date: 20070725
  Transmission Date: 20080115
  Serious: Yes (Other)
  Sender: FDA-Public Use
  Company Number: None

PATIENT
  Age: 69 Year
  Sex: Female
  Weight: 92.9874 kg

DRUGS (1)
  1. BONIVA [Suspect]
     Indication: OSTEOPOROSIS
     Dosage: 150 MG ONCE PER MO PO
     Route: 048
     Dates: start: 20070702

REACTIONS (10)
  - ABDOMINAL PAIN [None]
  - ANOREXIA [None]
  - BACK PAIN [None]
  - DIARRHOEA [None]
  - DYSPEPSIA [None]
  - MUSCLE SPASMS [None]
  - MUSCULOSKELETAL CHEST PAIN [None]
  - MUSCULOSKELETAL PAIN [None]
  - NECK PAIN [None]
  - PAIN [None]
